FAERS Safety Report 25024428 (Version 1)
Quarter: 2025Q1

REPORT INFORMATION
  Report Type: Spontaneous
  Country: US (occurrence: None)
  Receive Date: 20250228
  Receipt Date: 20250228
  Transmission Date: 20250409
  Serious: Yes (Life-Threatening, Hospitalization)
  Sender: FDA-CTU
  Company Number: None

PATIENT
  Age: 83 Year
  Sex: Male

DRUGS (1)
  1. APIXABAN [Suspect]
     Active Substance: APIXABAN
     Indication: Atrial fibrillation
     Dosage: 5.00 MG TWICE A DAY ORAL?
     Route: 048
     Dates: start: 20170907

REACTIONS (3)
  - Haemoptysis [None]
  - Incorrect dose administered [None]
  - Haemorrhage [None]

NARRATIVE: CASE EVENT DATE: 20241114
